FAERS Safety Report 7273256-8 (Version None)
Quarter: 2011Q1

REPORT INFORMATION
  Report Type: 
  Country: None (occurrence: None)
  Receive Date: 20110203
  Receipt Date: 20101104
  Transmission Date: 20110831
  Serious: No
  Sender: FDA-Public Use
  Company Number: US-ABBOTT-10P-163-0684084-00

PATIENT
  Sex: Female
  Weight: 64.922 kg

DRUGS (13)
  1. SYNTHROID [Suspect]
     Indication: HYPOTHYROIDISM
     Dates: start: 20080101, end: 20101027
  2. LANOXIN [Concomitant]
     Indication: CARDIAC FAILURE CONGESTIVE
  3. CALCIUM [Concomitant]
     Indication: MINERAL SUPPLEMENTATION
  4. SYNTHROID [Suspect]
     Indication: HYPOTHYROIDISM
     Dosage: ONE AND ONE QUARTER TABLETS, DAILY
     Dates: start: 20101101
  5. POTASSIUM [Concomitant]
     Indication: ELECTROLYTE SUBSTITUTION THERAPY
  6. FUROSEMIDE [Concomitant]
     Indication: DIURETIC THERAPY
  7. VITAMIN B [Concomitant]
     Indication: VITAMIN SUPPLEMENTATION
  8. ESTRADIOL [Concomitant]
     Indication: HORMONE REPLACEMENT THERAPY
  9. COUMADIN [Suspect]
     Indication: CARDIAC FAILURE CONGESTIVE
     Dates: end: 20080101
  10. CARVEDILOL [Concomitant]
     Indication: CARDIAC FAILURE CONGESTIVE
  11. SYNTHROID [Suspect]
     Dates: start: 20101027, end: 20101101
  12. COUMADIN [Suspect]
     Dates: start: 20080101
  13. ENALAPRIL MALEATE [Concomitant]
     Indication: CARDIAC FAILURE CONGESTIVE

REACTIONS (2)
  - RASH [None]
  - PAIN [None]
